FAERS Safety Report 7504201-5 (Version None)
Quarter: 2011Q2

REPORT INFORMATION
  Report Type: 
  Country: None (occurrence: None)
  Receive Date: 20110401
  Receipt Date: 20101229
  Transmission Date: 20111010
  Serious: No
  Sender: FDA-Public Use
  Company Number: US-004449

PATIENT
  Age: 65 Year
  Sex: Male
  Weight: 95.2554 kg

DRUGS (7)
  1. DIOVAN [Concomitant]
  2. FLOMAX [Concomitant]
  3. PIOGLITAZONE [Concomitant]
  4. GLUCOPHAGE [Concomitant]
  5. SIMVASTATIN [Concomitant]
  6. FIRMAGON [Suspect]
     Indication: PROSTATE CANCER
     Dosage: 240 MG TOTAL SUBCUTANEOUS, 80 MG 1X/MONTH SUBCUTANEOUS
     Route: 058
     Dates: start: 20100901
  7. FIRMAGON [Suspect]
     Indication: PROSTATE CANCER
     Dosage: 240 MG TOTAL SUBCUTANEOUS, 80 MG 1X/MONTH SUBCUTANEOUS
     Route: 058
     Dates: start: 20100804, end: 20100804

REACTIONS (7)
  - INJECTION SITE RASH [None]
  - INJECTION SITE NODULE [None]
  - MYALGIA [None]
  - INFLUENZA LIKE ILLNESS [None]
  - BLOOD GLUCOSE INCREASED [None]
  - HOT FLUSH [None]
  - HYPERHIDROSIS [None]
